FAERS Safety Report 15103162 (Version 1)
Quarter: 2018Q3

REPORT INFORMATION
  Report Type: Spontaneous
  Country: FR (occurrence: FR)
  Receive Date: 20180703
  Receipt Date: 20180703
  Transmission Date: 20181010
  Serious: Yes (Other)
  Sender: FDA-Public Use
  Company Number: FR-AMGEN-FRASP2018088292

PATIENT
  Age: 32 Year
  Sex: Male
  Weight: 75 kg

DRUGS (1)
  1. ENBREL [Suspect]
     Active Substance: ETANERCEPT
     Indication: ANKYLOSING SPONDYLITIS
     Dosage: 1 DF, UNK
     Route: 058
     Dates: start: 201510, end: 201612

REACTIONS (14)
  - Bladder pain [Recovered/Resolved]
  - Rhinitis [Recovered/Resolved]
  - Nail injury [Recovered/Resolved]
  - Arthralgia [Recovered/Resolved]
  - Abdominal pain [Recovered/Resolved]
  - Rash morbilliform [Recovered/Resolved]
  - Vessel puncture site haematoma [Recovered/Resolved]
  - Pharyngitis [Recovered/Resolved]
  - Oedema peripheral [Recovered/Resolved]
  - Xerosis [Recovered/Resolved]
  - Weight increased [Recovered/Resolved]
  - Oliguria [Recovered/Resolved]
  - Conjunctivitis [Recovered/Resolved]
  - Lymphadenopathy [Recovered/Resolved]

NARRATIVE: CASE EVENT DATE: 20161201
